FAERS Safety Report 7898769-7 (Version None)
Quarter: 2011Q4

REPORT INFORMATION
  Report Type: 
  Country: None (occurrence: None)
  Receive Date: 20111107
  Receipt Date: 20110331
  Transmission Date: 20120403
  Serious: No
  Sender: FDA-Public Use
  Company Number: US-ABBOTT-11P-163-0716351-00

PATIENT
  Age: 50 Year
  Sex: Female
  Weight: 74.91 kg

DRUGS (5)
  1. LIPITOR [Suspect]
     Indication: BLOOD CHOLESTEROL INCREASED
     Dates: start: 20010101, end: 20100101
  2. TRICOR [Suspect]
     Dates: start: 20110301
  3. LIVALO [Concomitant]
     Indication: BLOOD CHOLESTEROL INCREASED
     Dates: start: 20101201
  4. GEMFIBROZIL [Suspect]
     Indication: BLOOD CHOLESTEROL INCREASED
     Dates: start: 20100101, end: 20110101
  5. TRICOR [Suspect]
     Indication: BLOOD TRIGLYCERIDES INCREASED
     Dates: start: 20080301, end: 20100101

REACTIONS (1)
  - LIVER FUNCTION TEST ABNORMAL [None]
